FAERS Safety Report 5811886-8 (Version None)
Quarter: 2008Q3

REPORT INFORMATION
  Report Type: 
  Country: None (occurrence: None)
  Receive Date: 20080716
  Receipt Date: 20080702
  Transmission Date: 20090109
  Serious: Yes (Other)
  Sender: FDA-Public Use
  Company Number: FR-ELI_LILLY_AND_COMPANY-FR200807000493

PATIENT
  Age: 37 Year
  Sex: Female

DRUGS (2)
  1. CYMBALTA [Suspect]
     Indication: DEPRESSION
     Dosage: 30 MG, DAILY (1/D)
     Route: 048
     Dates: start: 20080528, end: 20080611
  2. MYOLASTAN [Concomitant]
     Dosage: UNK, UNKNOWN
     Route: 048

REACTIONS (1)
  - HYPERTENSION [None]
